FAERS Safety Report 9540104 (Version 4)
Quarter: 2013Q4

REPORT INFORMATION
  Report Type: Spontaneous
  Country: FR (occurrence: FR)
  Receive Date: 20130920
  Receipt Date: 20131011
  Transmission Date: 20140711
  Serious: Yes (Other)
  Sender: FDA-Public Use
  Company Number: FR-SANOFI-AVENTIS-POMP-1003260

PATIENT
  Age: 16 Month
  Sex: Female

DRUGS (5)
  1. MYOZYME [Suspect]
     Indication: GLYCOGEN STORAGE DISEASE TYPE II
     Dosage: 20 MG/KG, QW
     Route: 042
     Dates: start: 201303
  2. MYOZYME [Suspect]
     Indication: GLYCOGEN STORAGE DISEASE TYPE II
     Dosage: 20 MG/KG, QW
     Route: 042
     Dates: start: 201303
  3. MYOZYME [Suspect]
     Indication: GLYCOGEN STORAGE DISEASE TYPE II
     Route: 042
     Dates: start: 201207
  4. ANTIHISTAMINES [Concomitant]
     Indication: PREMEDICATION
  5. CORTICOSTEROIDS [Concomitant]
     Indication: PREMEDICATION

REACTIONS (7)
  - Hypotonia [Recovered/Resolved]
  - Therapeutic response unexpected [Unknown]
  - Lacrimation increased [Recovered/Resolved]
  - Oxygen saturation decreased [Recovered/Resolved]
  - Cyanosis [Recovered/Resolved]
  - Infusion related reaction [Unknown]
  - Malaise [Unknown]
